FAERS Safety Report 8927492 (Version 1)
Quarter: 2012Q4

REPORT INFORMATION
  Report Type: 
  Country: FR (occurrence: FR)
  Receive Date: 20121127
  Receipt Date: 20121127
  Transmission Date: 20130627
  Serious: Yes (Other)
  Sender: FDA-Public Use
  Company Number: PHHY2012FR107700

PATIENT
  Age: 55 Year
  Sex: Female

DRUGS (3)
  1. LAMISIL [Suspect]
     Indication: ONYCHOMYCOSIS
     Dosage: UNK UKN, QD
     Route: 048
     Dates: start: 2012
  2. TERBINAFINE [Suspect]
     Indication: ONYCHOMYCOSIS
     Dosage: UNK UKN, QD
     Route: 048
     Dates: start: 2012
  3. CRESTOR [Concomitant]
     Indication: HYPERCHOLESTEROLAEMIA

REACTIONS (5)
  - Cholestasis [Not Recovered/Not Resolved]
  - Cell death [Not Recovered/Not Resolved]
  - Transaminases increased [Not Recovered/Not Resolved]
  - Lipase increased [Not Recovered/Not Resolved]
  - Abdominal pain upper [Not Recovered/Not Resolved]
